FAERS Safety Report 5335932-3 (Version None)
Quarter: 2007Q2

REPORT INFORMATION
  Report Type: 
  Country: None (occurrence: None)
  Receive Date: 20070301
  Receipt Date: 20061116
  Transmission Date: 20071010
  Serious: Yes (Hospitalization, Other)
  Sender: FDA-Public Use
  Company Number: US200610000398

PATIENT
  Age: 60 Year
  Sex: Male
  Weight: 83.9 kg

DRUGS (9)
  1. ZYPREXA [Suspect]
     Indication: DEPRESSION
     Dosage: SEE IMAGE
     Dates: start: 20021216, end: 20030807
  2. ZYPREXA [Suspect]
     Indication: DEPRESSION
     Dosage: SEE IMAGE
     Dates: start: 20030807, end: 20040302
  3. ZYPREXA [Suspect]
     Indication: DEPRESSION
     Dosage: SEE IMAGE
     Dates: start: 20040302, end: 20040708
  4. ZYPREXA [Suspect]
     Indication: DEPRESSION
     Dosage: SEE IMAGE
     Dates: start: 20051026, end: 20060103
  5. ZYPREXA [Suspect]
     Indication: DEPRESSION
     Dosage: SEE IMAGE
     Dates: start: 20060419, end: 20060526
  6. SYMBYAX [Suspect]
     Dates: start: 20060526
  7. FLUOXETINE [Concomitant]
  8. MIRTAZAPINE [Concomitant]
  9. VENLAFAXINE HCL [Concomitant]

REACTIONS (5)
  - DIABETES MELLITUS [None]
  - EMOTIONAL DISTRESS [None]
  - HYPERGLYCAEMIA [None]
  - METABOLIC DISORDER [None]
  - PANCREATITIS [None]
